FAERS Safety Report 6305189-5 (Version None)
Quarter: 2009Q3

REPORT INFORMATION
  Report Type: 
  Country: None (occurrence: None)
  Receive Date: 20090807
  Receipt Date: 20090804
  Transmission Date: 20100115
  Serious: Yes (Hospitalization)
  Sender: FDA-Public Use
  Company Number: GXKR2009DE08848

PATIENT
  Age: 84 Year
  Sex: Female
  Weight: 73 kg

DRUGS (12)
  1. ACETYLSALICYLIC ACID (NGX)(ACETYLSALICYLIC ACID) TABLET, 100MG [Suspect]
     Indication: CARDIOVASCULAR EVENT PROPHYLAXIS
     Dosage: 100 MG, QD, ORAL
     Route: 048
     Dates: start: 20050101, end: 20090424
  2. PREDNISOLONE [Suspect]
     Indication: POLYMYALGIA RHEUMATICA
     Dosage: 20 MG, QD, ORAL; 15 MG/DAILY, ORAL; 10 MG/DAILY, ORAL
     Route: 048
     Dates: start: 20090401, end: 20090410
  3. PREDNISOLONE [Suspect]
     Indication: POLYMYALGIA RHEUMATICA
     Dosage: 20 MG, QD, ORAL; 15 MG/DAILY, ORAL; 10 MG/DAILY, ORAL
     Route: 048
     Dates: start: 20090411, end: 20090420
  4. PREDNISOLONE [Suspect]
     Indication: POLYMYALGIA RHEUMATICA
     Dosage: 20 MG, QD, ORAL; 15 MG/DAILY, ORAL; 10 MG/DAILY, ORAL
     Route: 048
     Dates: start: 20090421
  5. VOLTAREN [Suspect]
     Indication: OSTEOARTHRITIS
     Dosage: 75 MG, BID, ORAL
     Route: 048
     Dates: start: 19950101, end: 20090424
  6. ZOLPIDEM [Concomitant]
  7. XIPAMIDE (XIPAMIDE) [Concomitant]
  8. QUINAPRIL AND HYDROCHLOROTHIAZIDE (HYDROCHLOROTHIAZIDE, QUINAPRIL HYDR [Concomitant]
  9. PANTOPRAZOLE SODIUM [Concomitant]
  10. METFORMIN HCL [Concomitant]
  11. FOSAMAX [Concomitant]
  12. DILZEM ^ELAN^ (DILTIAZEM HYDROCHLORIDE) [Concomitant]

REACTIONS (1)
  - COLITIS [None]
